FAERS Safety Report 21266001 (Version 1)
Quarter: 2022Q3

REPORT INFORMATION
  Report Type: Spontaneous
  Country: FR (occurrence: FR)
  Receive Date: 20220829
  Receipt Date: 20220829
  Transmission Date: 20221027
  Serious: Yes (Hospitalization, Other)
  Sender: FDA-Public Use
  Company Number: None

PATIENT
  Age: 16 Year
  Sex: Male

DRUGS (4)
  1. LYRICA [Suspect]
     Active Substance: PREGABALIN
     Dosage: 2 TO 3 CAPSULES PER DAY ANNOUNCED
     Route: 048
     Dates: start: 2020
  2. RIVOTRIL [Suspect]
     Active Substance: CLONAZEPAM
     Dosage: 4 TO 5 PER DAY ANNOUNCED
     Route: 048
     Dates: start: 2020
  3. COCAINE [Concomitant]
     Active Substance: COCAINE
     Dosage: DOSE NOT SPECIFIED
     Route: 045
     Dates: start: 2020
  4. CANNABIS SATIVA SUBSP. INDICA TOP [Concomitant]
     Active Substance: CANNABIS SATIVA SUBSP. INDICA TOP
     Dosage: DOSE NOT SPECIFIED
     Route: 055
     Dates: start: 2020

REACTIONS (3)
  - Drug abuse [Recovered/Resolved]
  - Coma [Recovered/Resolved]
  - Off label use [Unknown]

NARRATIVE: CASE EVENT DATE: 20220601
